FAERS Safety Report 6712801-5 (Version None)
Quarter: 2010Q2

REPORT INFORMATION
  Report Type: 
  Country: None (occurrence: None)
  Receive Date: 20100506
  Receipt Date: 20090618
  Transmission Date: 20101027
  Serious: No
  Sender: FDA-Public Use
  Company Number: A0793305A

PATIENT
  Age: 84 Year
  Sex: Female

DRUGS (1)
  1. AUGMENTIN [Suspect]
     Indication: DRUG USE FOR UNKNOWN INDICATION

REACTIONS (1)
  - HYPERSENSITIVITY [None]
